FAERS Safety Report 24817594 (Version 2)
Quarter: 2025Q1

REPORT INFORMATION
  Report Type: Spontaneous
  Country: US (occurrence: US)
  Receive Date: 20250108
  Receipt Date: 20250110
  Transmission Date: 20250409
  Serious: Yes (Other)
  Sender: SANDOZ
  Company Number: US-SANDOZ-SDZ2025US000461

PATIENT
  Sex: Male

DRUGS (2)
  1. DAPAGLIFLOZIN [Suspect]
     Active Substance: DAPAGLIFLOZIN
     Indication: Hidradenitis
     Route: 048
  2. ROSUVASTATIN [Suspect]
     Active Substance: ROSUVASTATIN
     Indication: Hidradenitis
     Route: 048

REACTIONS (4)
  - Chest wall abscess [Recovering/Resolving]
  - Dermatitis acneiform [Recovering/Resolving]
  - Fistula [Recovering/Resolving]
  - Product use in unapproved indication [Unknown]
